FAERS Safety Report 25980814 (Version 1)
Quarter: 2025Q4

REPORT INFORMATION
  Report Type: Spontaneous
  Country: US (occurrence: None)
  Receive Date: 20251030
  Receipt Date: 20251030
  Transmission Date: 20260118
  Serious: Yes (Hospitalization)
  Sender: FDA-CTU
  Company Number: None

PATIENT
  Sex: Male

DRUGS (2)
  1. SUNITINIB MALATE [Suspect]
     Active Substance: SUNITINIB MALATE
     Indication: Jaundice
     Dosage: FREQUENCY : DAILY;?
     Route: 048
  2. IMATINIB MESYLATE [Concomitant]
     Active Substance: IMATINIB MESYLATE

REACTIONS (2)
  - Jaundice [None]
  - Condition aggravated [None]
